FAERS Safety Report 8891027 (Version 1)
Quarter: 2012Q4

REPORT INFORMATION
  Report Type: 
  Country: US (occurrence: US)
  Receive Date: 20121107
  Receipt Date: 20121107
  Transmission Date: 20130627
  Serious: No
  Sender: FDA-Public Use
  Company Number: US-ASTRAZENECA-2012SE83793

PATIENT
  Age: 57 Year
  Sex: Female
  Weight: 50.8 kg

DRUGS (4)
  1. NEXIUM [Suspect]
     Indication: OESOPHAGEAL DISORDER
     Route: 048
  2. OMEPRAZOLE [Suspect]
     Indication: GASTROOESOPHAGEAL REFLUX DISEASE
     Route: 048
     Dates: start: 2000
  3. SEROQUEL [Suspect]
     Route: 048
     Dates: start: 2004, end: 201207
  4. CRESTOR [Suspect]
     Indication: BLOOD CHOLESTEROL INCREASED
     Route: 048

REACTIONS (6)
  - Nightmare [Unknown]
  - Palpitations [Unknown]
  - Mental disorder [Unknown]
  - Weight decreased [Unknown]
  - Drug effect incomplete [Unknown]
  - Drug dose omission [Unknown]
